FAERS Safety Report 6981376-8 (Version None)
Quarter: 2010Q3

REPORT INFORMATION
  Report Type: 
  Country: None (occurrence: None)
  Receive Date: 20100909
  Receipt Date: 20100826
  Transmission Date: 20110219
  Serious: Yes (Hospitalization)
  Sender: FDA-Public Use
  Company Number: 2010AL000121

PATIENT
  Age: 64 Year
  Sex: Male

DRUGS (3)
  1. FOLOTYN [Suspect]
     Indication: T-CELL LYMPHOMA
     Dosage: 20 MG/M**2;
  2. FOLATE [Concomitant]
  3. VITAMIN B-12 [Concomitant]

REACTIONS (4)
  - ASCITES [None]
  - NEUTROPHIL COUNT DECREASED [None]
  - PLATELET COUNT DECREASED [None]
  - PLEURAL EFFUSION [None]
